FAERS Safety Report 7509138-3 (Version None)
Quarter: 2011Q2

REPORT INFORMATION
  Report Type: 
  Country: None (occurrence: None)
  Receive Date: 20110527
  Receipt Date: 20110428
  Transmission Date: 20111010
  Serious: Yes (Hospitalization)
  Sender: FDA-Public Use
  Company Number: JP-TYCO HEALTHCARE/MALLINCKRODT-T201101117

PATIENT
  Sex: Female

DRUGS (1)
  1. METHADONE HCL [Suspect]
     Dosage: 5 MG
     Route: 048
     Dates: start: 20110421

REACTIONS (1)
  - MALAISE [None]
